APPROVED DRUG PRODUCT: RALOXIFENE HYDROCHLORIDE
Active Ingredient: RALOXIFENE HYDROCHLORIDE
Strength: 60MG
Dosage Form/Route: TABLET;ORAL
Application: A200825 | Product #001 | TE Code: AB
Applicant: WATSON LABORATORIES INC
Approved: Jan 21, 2015 | RLD: No | RS: No | Type: RX